FAERS Safety Report 4500724-1 (Version None)
Quarter: 2004Q4

REPORT INFORMATION
  Report Type: 
  Country: None (occurrence: None)
  Receive Date: 20041112
  Receipt Date: 20041112
  Transmission Date: 20050328
  Serious: Yes (Other)
  Sender: FDA-Public Use
  Company Number: None

PATIENT
  Age: 27 Year
  Sex: Male
  Weight: 60 kg

DRUGS (14)
  1. NAFCILLIN [Suspect]
     Indication: STAPHYLOCOCCAL INFECTION
     Dosage: 2 GMS IV Q 4 H
     Route: 042
     Dates: start: 20041018, end: 20041027
  2. AZITHROMYCIN [Concomitant]
  3. CELEXA [Concomitant]
  4. DIFLUCAN [Concomitant]
  5. EPIVIR [Concomitant]
  6. STAVUDINE [Concomitant]
  7. SEPTRA DS [Concomitant]
  8. KALETRA [Concomitant]
  9. VICODIN [Concomitant]
  10. AMBIEN [Concomitant]
  11. INH [Concomitant]
  12. RIFAMPICIN [Concomitant]
  13. ETHAMBUTOL [Concomitant]
  14. PYRAZINAMIDE [Concomitant]

REACTIONS (1)
  - RASH [None]
